FAERS Safety Report 13045366 (Version 7)
Quarter: 2018Q2

REPORT INFORMATION
  Report Type: Report from Study
  Country: GB (occurrence: GB)
  Receive Date: 20161220
  Receipt Date: 20180529
  Transmission Date: 20180711
  Serious: Yes (Hospitalization, Other)
  Sender: FDA-Public Use
  Company Number: GB-BRISTOL-MYERS SQUIBB COMPANY-BMS-2016-077571

PATIENT
  Sex: Female

DRUGS (1)
  1. ABATACEPT [Suspect]
     Active Substance: ABATACEPT
     Indication: RHEUMATOID ARTHRITIS
     Dosage: 125 MG, QWK
     Route: 058
     Dates: start: 201606

REACTIONS (8)
  - Chronic obstructive pulmonary disease [Unknown]
  - Hyperthermia [Unknown]
  - Pain [Unknown]
  - Drug ineffective [Unknown]
  - Abdominal discomfort [Unknown]
  - Mobility decreased [Unknown]
  - Fall [Unknown]
  - Malaise [Unknown]
